FAERS Safety Report 9215417 (Version 1)
Quarter: 2013Q2

REPORT INFORMATION
  Report Type: Report from Study
  Country: FR (occurrence: FR)
  Receive Date: 20130405
  Receipt Date: 20130405
  Transmission Date: 20140414
  Serious: Yes (Other)
  Sender: FDA-Public Use
  Company Number: FR-AMGEN-UK290740

PATIENT
  Age: 70 Year
  Sex: Male

DRUGS (15)
  1. DENOSUMAB [Suspect]
     Indication: PROSTATE CANCER
     Dosage: UNK UNK, Q4WK
     Route: 058
     Dates: start: 20060713, end: 20080425
  2. MITOXANTRONE HYDROCHLORIDE [Concomitant]
     Dosage: 21 MG, UNK
     Dates: start: 20071005, end: 20080208
  3. BROMAZEPAM [Concomitant]
     Dosage: UNK UNK, QD
     Route: 048
     Dates: start: 2002
  4. GABAPENTIN [Concomitant]
     Dosage: 100 MG, QD
     Route: 048
     Dates: start: 2002
  5. PARACETAMOL/TRAMADOL HYDROCHLORIDE [Concomitant]
     Dosage: UNK UNK, TID
     Route: 048
     Dates: start: 2002
  6. MEPROBAMATE [Concomitant]
     Dosage: UNK UNK, QD
     Route: 048
     Dates: start: 2002
  7. LANZOR [Concomitant]
     Dosage: 30 MG, QD
     Route: 048
     Dates: start: 2002
  8. LACTULOSE [Concomitant]
     Dosage: UNK UNK, TID
     Route: 048
     Dates: start: 2002
  9. ZANIDIP [Concomitant]
     Dosage: 10 MG, QD
     Route: 048
     Dates: start: 2002
  10. CALCIDOSE [Concomitant]
     Dosage: 500 MG, QD
     Route: 048
     Dates: start: 2002
  11. OMIX [Concomitant]
     Dosage: UNK UNK, QD
     Route: 048
     Dates: start: 20070316
  12. ZOPICLONE [Concomitant]
     Dosage: UNK UNK, QD
     Route: 048
     Dates: start: 20070613
  13. BUMETANIDE [Concomitant]
     Dosage: 1 MG, QD
     Route: 048
     Dates: start: 20071005
  14. BELLADONNA EXTRACT/CAFFEINE/OPIUM [Concomitant]
     Dosage: UNK UNK, PRN
     Route: 048
     Dates: start: 20080115
  15. ALPRAZOLAM [Concomitant]
     Dosage: UNK UNK, QD
     Route: 048
     Dates: start: 20080115

REACTIONS (1)
  - Osteonecrosis of jaw [Not Recovered/Not Resolved]
